FAERS Safety Report 4703907-0 (Version None)
Quarter: 2005Q2

REPORT INFORMATION
  Report Type: 
  Country: None (occurrence: None)
  Receive Date: 20050629
  Receipt Date: 20050629
  Transmission Date: 20051028
  Serious: Yes (Disabling)
  Sender: FDA-Public Use
  Company Number: None

PATIENT
  Sex: Female
  Weight: 116.5744 kg

DRUGS (1)
  1. ZOCOR [Suspect]
     Dosage: ONE PO AHS
     Route: 048
     Dates: start: 20050410, end: 20050618

REACTIONS (2)
  - OEDEMA PERIPHERAL [None]
  - PLANTAR FASCIITIS [None]
